APPROVED DRUG PRODUCT: LEVOFLOXACIN
Active Ingredient: LEVOFLOXACIN
Strength: 0.5%
Dosage Form/Route: SOLUTION/DROPS;OPHTHALMIC
Application: A077700 | Product #001 | TE Code: AT
Applicant: RISING PHARMA HOLDINGS INC
Approved: Dec 20, 2010 | RLD: No | RS: Yes | Type: RX